FAERS Safety Report 8216728-1 (Version None)
Quarter: 2012Q1

REPORT INFORMATION
  Report Type: 
  Country: None (occurrence: None)
  Receive Date: 20120316
  Receipt Date: 20120305
  Transmission Date: 20120608
  Serious: Yes (Hospitalization)
  Sender: FDA-Public Use
  Company Number: GB-ROCHE-1046435

PATIENT
  Sex: Female

DRUGS (3)
  1. METHOTREXATE [Concomitant]
     Dates: start: 20100901
  2. HYDROXYCHLOROQUINE SULFATE [Concomitant]
     Dates: start: 20110527
  3. MABTHERA [Suspect]
     Indication: PRODUCT USED FOR UNKNOWN INDICATION
     Dates: start: 20100929

REACTIONS (2)
  - FEMORAL ARTERY OCCLUSION [None]
  - LOCALISED INFECTION [None]
